FAERS Safety Report 5915616-0 (Version None)
Quarter: 2008Q4

REPORT INFORMATION
  Report Type: 
  Country: None (occurrence: None)
  Receive Date: 20081010
  Receipt Date: 20080929
  Transmission Date: 20090506
  Serious: Yes (Other)
  Sender: FDA-Public Use
  Company Number: US-PFIZER INC-2008079064

PATIENT
  Sex: Female
  Weight: 81.6 kg

DRUGS (4)
  1. CHANTIX [Suspect]
     Indication: SMOKING CESSATION THERAPY
     Dates: start: 20080716
  2. PREDNISONE TAB [Concomitant]
     Dates: end: 20080701
  3. ADVAIR DISKUS 100/50 [Concomitant]
  4. IBUPROFEN [Concomitant]

REACTIONS (5)
  - ANGER [None]
  - DRUG DOSE OMISSION [None]
  - DRUG INEFFECTIVE [None]
  - INJURY [None]
  - MEMORY IMPAIRMENT [None]
